FAERS Safety Report 4738238-6 (Version None)
Quarter: 2005Q3

REPORT INFORMATION
  Report Type: 
  Country: None (occurrence: None)
  Receive Date: 20050805
  Receipt Date: 20050725
  Transmission Date: 20060218
  Serious: Yes (Life-Threatening, Hospitalization, Disabling)
  Sender: FDA-Public Use
  Company Number: 2005021846

PATIENT
  Age: 13 Year
  Sex: Female
  Weight: 16 kg

DRUGS (1)
  1. GENOTROPIN [Suspect]
     Indication: HYPOPITUITARISM
     Dosage: 1 MG (1 MG, DAILY), SUBCUTANEOUS
     Route: 058
     Dates: start: 19921013, end: 20000107

REACTIONS (1)
  - SQUAMOUS CELL CARCINOMA [None]
